FAERS Safety Report 4509388-4 (Version None)
Quarter: 2004Q4

REPORT INFORMATION
  Report Type: 
  Country: None (occurrence: None)
  Receive Date: 20041025
  Receipt Date: 20040625
  Transmission Date: 20050328
  Serious: Yes (Hospitalization)
  Sender: FDA-Public Use
  Company Number: US-JNJFOC-20040608080

PATIENT
  Age: 40 Year
  Sex: Female

DRUGS (8)
  1. INFLIXIMAB (INFLIXIMAB, RECOMBINANT) LYOPHILIZED POWDER [Suspect]
     Indication: RHEUMATOID ARTHRITIS
     Dosage: INTRAVENOUS
     Route: 042
     Dates: start: 20020425, end: 20031117
  2. NEURONTIN [Concomitant]
  3. CYCLOBENZAPRINE ( ) CYCLOBENZAPRINE [Concomitant]
  4. HYDROCODONE ( ) HYDROCODONE [Concomitant]
  5. METHOTREXATE [Concomitant]
  6. FOLIC ACID [Concomitant]
  7. PERCOCET [Concomitant]
  8. MULTIVITAMIN ( ) MULTIVITAMINS [Concomitant]

REACTIONS (1)
  - PNEUMONIA [None]
